FAERS Safety Report 8845103 (Version 6)
Quarter: 2013Q4

REPORT INFORMATION
  Report Type: Report from Study
  Country: TH (occurrence: TH)
  Receive Date: 20121017
  Receipt Date: 20131122
  Transmission Date: 20140711
  Serious: Yes (Death, Life-Threatening, Hospitalization, Disabling)
  Sender: FDA-Public Use
  Company Number: TH-SANOFI-AVENTIS-2012SA075152

PATIENT
  Age: 75 Year
  Sex: Male
  Weight: 54 kg

DRUGS (12)
  1. CABAZITAXEL [Suspect]
     Indication: PROSTATE CANCER METASTATIC
     Route: 042
     Dates: start: 20120522, end: 20120522
  2. CABAZITAXEL [Suspect]
     Indication: PROSTATE CANCER METASTATIC
     Route: 042
     Dates: start: 20120612, end: 20120612
  3. PREDNISOLONE [Suspect]
     Indication: PROSTATE CANCER METASTATIC
     Route: 048
     Dates: start: 20120522, end: 20120617
  4. XATRAL XL [Concomitant]
     Route: 065
  5. CALCIDOL [Concomitant]
     Route: 065
  6. ZYRTEC [Concomitant]
     Route: 065
  7. ERTAPENEM [Concomitant]
     Route: 065
  8. MUCOSTA [Concomitant]
     Route: 065
  9. FOLIC ACID [Concomitant]
     Route: 065
  10. CHALK [Concomitant]
     Route: 065
  11. DAFLON [Concomitant]
     Route: 065
  12. OMEPRAZOLE [Concomitant]
     Route: 065

REACTIONS (2)
  - Neutropenic sepsis [Fatal]
  - Encephalopathy [Not Recovered/Not Resolved]
